FAERS Safety Report 5842425-3 (Version None)
Quarter: 2008Q3

REPORT INFORMATION
  Report Type: 
  Country: None (occurrence: None)
  Receive Date: 20080808
  Receipt Date: 20080731
  Transmission Date: 20090109
  Serious: Yes (Other)
  Sender: FDA-Public Use
  Company Number: 198766

PATIENT
  Age: 51 Year
  Sex: Female

DRUGS (6)
  1. AVONEX [Suspect]
     Indication: MULTIPLE SCLEROSIS
     Dosage: 30 UG; QW; IM, 30 UG; QW; IM, 30 UG; QW; IM
     Route: 030
     Dates: start: 19990101, end: 20040101
  2. AVONEX [Suspect]
     Indication: MULTIPLE SCLEROSIS
     Dosage: 30 UG; QW; IM, 30 UG; QW; IM, 30 UG; QW; IM
     Route: 030
     Dates: start: 20080401, end: 20080401
  3. IBUPROFEN [Concomitant]
  4. VALIUM [Concomitant]
  5. OGEN [Concomitant]
  6. PAXIL [Concomitant]

REACTIONS (8)
  - BACTERIAL INFECTION [None]
  - BIOPSY VOCAL CORD ABNORMAL [None]
  - BLOOD PRESSURE DECREASED [None]
  - COLITIS ULCERATIVE [None]
  - GASTROINTESTINAL DISORDER [None]
  - SQUAMOUS CELL CARCINOMA [None]
  - THROAT CANCER [None]
  - WEIGHT DECREASED [None]
